FAERS Safety Report 14852017 (Version 1)
Quarter: 2018Q2

REPORT INFORMATION
  Report Type: Spontaneous
  Country: CA (occurrence: CA)
  Receive Date: 20180507
  Receipt Date: 20180507
  Transmission Date: 20180711
  Serious: Yes (Other)
  Sender: FDA-Public Use
  Company Number: CA-ROCHE-2115425

PATIENT
  Age: 76 Year
  Sex: Female

DRUGS (30)
  1. XELJANZ [Suspect]
     Active Substance: TOFACITINIB CITRATE
     Indication: PRODUCT USED FOR UNKNOWN INDICATION
     Route: 065
  2. HYDROMORPHONE [Concomitant]
     Active Substance: HYDROMORPHONE
  3. OXYNEO [Concomitant]
     Active Substance: OXYCODONE
     Route: 065
  4. PANTOPRAZOLE SODIUM. [Concomitant]
     Active Substance: PANTOPRAZOLE SODIUM
  5. RITUXAN [Concomitant]
     Active Substance: RITUXIMAB
     Route: 042
  6. ORENCIA [Suspect]
     Active Substance: ABATACEPT
     Indication: PRODUCT USED FOR UNKNOWN INDICATION
     Route: 042
  7. ATIVAN [Concomitant]
     Active Substance: LORAZEPAM
  8. DILAUDID [Concomitant]
     Active Substance: HYDROMORPHONE HYDROCHLORIDE
  9. KENALOG (CANADA) [Concomitant]
     Route: 014
  10. ACTEMRA [Suspect]
     Active Substance: TOCILIZUMAB
     Indication: PRODUCT USED FOR UNKNOWN INDICATION
     Route: 065
  11. ANAKINRA [Concomitant]
     Active Substance: ANAKINRA
     Route: 058
  12. RESTASIS [Concomitant]
     Active Substance: CYCLOSPORINE
     Route: 065
  13. ACETAMINOPHEN. [Concomitant]
     Active Substance: ACETAMINOPHEN
  14. BENADRYL [Concomitant]
     Active Substance: DIPHENHYDRAMINE HYDROCHLORIDE
  15. ARAVA [Suspect]
     Active Substance: LEFLUNOMIDE
     Indication: PRODUCT USED FOR UNKNOWN INDICATION
     Route: 065
  16. HUMIRA [Suspect]
     Active Substance: ADALIMUMAB
     Indication: RHEUMATOID ARTHRITIS
     Route: 058
  17. CODEINE [Concomitant]
     Active Substance: CODEINE
  18. LOPERAMIDE [Concomitant]
     Active Substance: LOPERAMIDE
  19. SYNTHROID [Concomitant]
     Active Substance: LEVOTHYROXINE SODIUM
  20. ENABLEX [Concomitant]
     Active Substance: DARIFENACIN HYDROBROMIDE
     Dosage: TABLET (EXTENDED RELEASE)
     Route: 065
  21. NORFLEX [Concomitant]
     Active Substance: ORPHENADRINE CITRATE
  22. URISPAS [Concomitant]
     Active Substance: FLAVOXATE HYDROCHLORIDE
     Route: 065
  23. KADIAN [Concomitant]
     Active Substance: MORPHINE SULFATE
     Route: 065
  24. PLAQUENIL [Suspect]
     Active Substance: HYDROXYCHLOROQUINE SULFATE
     Indication: RHEUMATOID ARTHRITIS
     Route: 065
  25. SODIUM AUROTHIOMALATE [Suspect]
     Active Substance: GOLD SODIUM THIOMALATE
     Indication: PRODUCT USED FOR UNKNOWN INDICATION
     Route: 030
  26. DESOXIMETASONE. [Concomitant]
     Active Substance: DESOXIMETASONE
  27. LASIX [Concomitant]
     Active Substance: FUROSEMIDE
  28. OMNARIS [Concomitant]
     Active Substance: CICLESONIDE
     Route: 065
  29. TRIMETHOPRIM. [Concomitant]
     Active Substance: TRIMETHOPRIM
     Route: 065
  30. VAGIFEM [Concomitant]
     Active Substance: ESTRADIOL
     Route: 067

REACTIONS (13)
  - Arthritis [Recovered/Resolved]
  - Liver function test abnormal [Recovered/Resolved]
  - Peripheral swelling [Recovered/Resolved]
  - Soft tissue swelling [Recovered/Resolved]
  - Arthralgia [Recovered/Resolved]
  - Herpes zoster [Recovered/Resolved]
  - Synovitis [Recovered/Resolved]
  - Fibromyalgia [Recovered/Resolved]
  - Pneumonia viral [Recovered/Resolved]
  - Blood cholesterol increased [Recovered/Resolved]
  - Anaemia [Recovered/Resolved]
  - Infection [Recovered/Resolved]
  - Leukopenia [Recovered/Resolved]
